FAERS Safety Report 4953084-6 (Version None)
Quarter: 2006Q1

REPORT INFORMATION
  Report Type: 
  Country: None (occurrence: None)
  Receive Date: 20060324
  Receipt Date: 20060316
  Transmission Date: 20060701
  Serious: Yes (Hospitalization)
  Sender: FDA-Public Use
  Company Number: 2006CG00516

PATIENT
  Age: 80 Year
  Sex: Female

DRUGS (4)
  1. TENORMIN [Suspect]
     Route: 048
     Dates: end: 20060107
  2. METHOTREXATE [Suspect]
     Route: 048
     Dates: start: 20051206
  3. METHOTREXATE [Suspect]
     Route: 048
     Dates: end: 20060102
  4. ALDACTAZINE [Suspect]
     Route: 048
     Dates: end: 20060108

REACTIONS (4)
  - ACUTE PULMONARY OEDEMA [None]
  - CHOLESTASIS [None]
  - CYTOLYTIC HEPATITIS [None]
  - HEPATITIS [None]
